FAERS Safety Report 12171913 (Version 2)
Quarter: 2016Q1

REPORT INFORMATION
  Report Type: Spontaneous
  Country: SK (occurrence: SK)
  Receive Date: 20160311
  Receipt Date: 20160311
  Transmission Date: 20160526
  Serious: Yes (Death, Other)
  Sender: FDA-Public Use
  Company Number: SK-BAYER-2016-041820

PATIENT
  Age: 2 Hour
  Sex: Male
  Weight: .5 kg

DRUGS (2)
  1. ASPIRIN. [Suspect]
     Active Substance: ASPIRIN
     Dosage: 100 MG/DL, UNK
     Route: 064
  2. HEPARIN [Concomitant]
     Active Substance: HEPARIN SODIUM
     Dosage: UNK
     Route: 064

REACTIONS (4)
  - Premature baby [None]
  - Foetal exposure timing unspecified [None]
  - Premature baby death [Fatal]
  - Low birth weight baby [None]
